FAERS Safety Report 20667765 (Version 11)
Quarter: 2023Q4

REPORT INFORMATION
  Report Type: Spontaneous
  Country: FR (occurrence: FR)
  Receive Date: 20220404
  Receipt Date: 20231004
  Transmission Date: 20240110
  Serious: Yes (Hospitalization, Other)
  Sender: FDA-Public Use
  Company Number: FR-Concordia Pharmaceuticals Inc.-GSH201703-001429

PATIENT

DRUGS (34)
  1. HYDROXYCHLOROQUINE SULFATE [Interacting]
     Active Substance: HYDROXYCHLOROQUINE SULFATE
     Indication: Hypertension
     Dosage: 200 MG, BID
     Route: 065
     Dates: start: 201512, end: 201606
  2. HYDROXYCHLOROQUINE SULFATE [Interacting]
     Active Substance: HYDROXYCHLOROQUINE SULFATE
     Indication: Chronic cutaneous lupus erythematosus
     Dosage: 200 MG, BID
     Route: 065
     Dates: start: 20160928, end: 20161106
  3. HYDROXYCHLOROQUINE SULFATE [Interacting]
     Active Substance: HYDROXYCHLOROQUINE SULFATE
     Indication: Raynaud^s phenomenon
     Dosage: 200 MG, QD  (EVENING)
     Dates: start: 20161107, end: 201611
  4. HYDROXYCHLOROQUINE SULFATE [Interacting]
     Active Substance: HYDROXYCHLOROQUINE SULFATE
     Dosage: 45 DOSAGE FORM, TOTAL (45 DF, 1X, TABLETS )
     Route: 048
     Dates: start: 20161127, end: 20161127
  5. NIFEDIPINE [Interacting]
     Active Substance: NIFEDIPINE
     Indication: Blood pressure management
     Dosage: 30 MG, QD (CHRONADALATE LP 30 )
     Route: 065
  6. NIFEDIPINE [Interacting]
     Active Substance: NIFEDIPINE
     Dosage: 90 MG
     Route: 065
  7. THALIDOMIDE [Suspect]
     Active Substance: THALIDOMIDE
     Dosage: 100 MG, QD
     Route: 065
     Dates: start: 20160613, end: 20160927
  8. THALIDOMIDE [Suspect]
     Active Substance: THALIDOMIDE
     Dosage: 50 MG, QD
     Route: 065
     Dates: start: 20160928, end: 20161106
  9. THALIDOMIDE [Suspect]
     Active Substance: THALIDOMIDE
     Dosage: 50 MG, QOD
     Route: 065
     Dates: start: 20161107, end: 201611
  10. THALIDOMIDE [Suspect]
     Active Substance: THALIDOMIDE
     Dosage: 1 DOSAGE FORM, BIW
     Route: 065
  11. ALPRAZOLAM [Suspect]
     Active Substance: ALPRAZOLAM
     Indication: Suicide attempt
     Dosage: 0.5 MG, QD (AT NIGHT)
     Dates: start: 201611
  12. ALPRAZOLAM [Suspect]
     Active Substance: ALPRAZOLAM
     Indication: Psychotic disorder
     Dosage: 30 DOSAGE FORM, TOTAL (30 DF, 1X, TABLETS)
     Route: 065
     Dates: start: 20161127, end: 20161127
  13. ALPRAZOLAM [Suspect]
     Active Substance: ALPRAZOLAM
     Dosage: 0.25 MG, QD (AT NIGHT)
  14. ALPRAZOLAM [Suspect]
     Active Substance: ALPRAZOLAM
     Dosage: UNK (28 TABLETS)
     Dates: start: 20161107, end: 201611
  15. REVLIMID [Suspect]
     Active Substance: LENALIDOMIDE
     Indication: Product used for unknown indication
     Dosage: 5 MG, QD
     Route: 065
  16. LENALIDOMIDE [Suspect]
     Active Substance: LENALIDOMIDE
     Indication: Chronic cutaneous lupus erythematosus
     Dosage: 5 MG, QD
  17. THALIDOMIDE [Suspect]
     Active Substance: THALIDOMIDE
     Indication: Chronic cutaneous lupus erythematosus
     Dosage: 28 DOSAGE FORM, TOTAL (8 DF, 1X, TABLETS)
     Route: 048
     Dates: start: 20161127, end: 20161127
  18. THALIDOMIDE [Suspect]
     Active Substance: THALIDOMIDE
     Dosage: 50 MG, QD
     Route: 065
  19. THALIDOMIDE [Suspect]
     Active Substance: THALIDOMIDE
     Dosage: 50 MG, QOD
     Dates: start: 20160928
  20. ASPIRIN [Concomitant]
     Active Substance: ASPIRIN
     Dosage: 100 MG, QD
  21. ASPIRIN [Concomitant]
     Active Substance: ASPIRIN
     Dosage: 100 MG
  22. IMOVANE [Concomitant]
     Active Substance: ZOPICLONE
     Dosage: 1 DOSAGE FORM (1COMP/ TABLET)
  23. DUPHALAC [Concomitant]
     Active Substance: LACTULOSE
     Dosage: 1 SACHET AT 8 :00, 1 SACHET AT 12 :00 , 1 SACHET AT 19 :00
  24. ACETAMINOPHEN [Concomitant]
     Active Substance: ACETAMINOPHEN
     Dosage: UNK
     Route: 065
  25. RISPERDAL [Concomitant]
     Active Substance: RISPERIDONE
     Dosage: 1 DOSAGE FORM, BID (1 TABLET AT 8:00, 1 TABLET AT 19:00)
  26. RISPERDAL [Concomitant]
     Active Substance: RISPERIDONE
     Dosage: UNK, DOSE REDUCED THEN STOPPED WITHIN TWO WEEKS
  27. RISPERDAL [Concomitant]
     Active Substance: RISPERIDONE
     Dosage: 8 MG, QD
  28. MINERAL OIL [Concomitant]
     Active Substance: MINERAL OIL
     Dosage: LANSOYL SINGLE DOSE 1 DOSE AT 8:00, 1 DOSE AT 12:00, 1 DOSE AT 19:00
  29. XANAX [Concomitant]
     Active Substance: ALPRAZOLAM
     Dosage: 1 DOSAGE FORM, TID (1 TABLET AT 8:00 , 1 TABLET AT 12:00, 1 TABLET AT 19:00)
  30. TROPATEPINE HYDROCHLORIDE [Concomitant]
     Active Substance: TROPATEPINE HYDROCHLORIDE
     Dosage: 2 DOSAGE FORM, BID (1 TABLET AT 8:00, 1 TABLET AT 19:00)
  31. CANNABIS SATIVA SUBSP. INDICA TOP [Concomitant]
     Active Substance: CANNABIS SATIVA SUBSP. INDICA TOP
     Dosage: UNK
     Route: 065
  32. REVLIMID [Concomitant]
     Active Substance: LENALIDOMIDE
     Dosage: UNK
     Route: 065
  33. ASPIRIN [Concomitant]
     Active Substance: ASPIRIN
     Dosage: 100 MG, QD
     Dates: start: 20160613
  34. CHLORMADINONE ACETATE [Concomitant]
     Active Substance: CHLORMADINONE ACETATE
     Dosage: 10 MG (21 DAYS OUT OF 28)

REACTIONS (37)
  - Depressed mood [Unknown]
  - Major depression [Recovered/Resolved]
  - Delirium [Recovered/Resolved]
  - Toxicity to various agents [Unknown]
  - Persecutory delusion [Unknown]
  - Anxiety [Recovered/Resolved]
  - Thought blocking [Recovered/Resolved]
  - Hallucination, auditory [Unknown]
  - Confusional state [Recovered/Resolved]
  - Fall [Recovering/Resolving]
  - Foot fracture [Recovering/Resolving]
  - Parosmia [Recovered/Resolved]
  - Crying [Recovered/Resolved]
  - Disturbance in attention [Recovered/Resolved]
  - Sleep disorder [Recovered/Resolved]
  - Soliloquy [Recovered/Resolved]
  - Renal disorder [Recovering/Resolving]
  - Arthralgia [Unknown]
  - Contusion [Recovering/Resolving]
  - Somnolence [Recovered/Resolved]
  - Inappropriate affect [Recovered/Resolved]
  - Headache [Unknown]
  - Emotional disorder [Recovered/Resolved]
  - Psychotic disorder [Recovered/Resolved]
  - Suicide attempt [Unknown]
  - Nightmare [Unknown]
  - Suicidal ideation [Unknown]
  - Cardiac arrest [Recovering/Resolving]
  - Overdose [Unknown]
  - Drug intolerance [Recovered/Resolved]
  - Asthenia [Recovering/Resolving]
  - Orthostatic hypotension [Recovering/Resolving]
  - Drug interaction [Recovering/Resolving]
  - Back pain [Unknown]
  - Fatigue [Unknown]
  - Vertigo [Recovering/Resolving]
  - Visual impairment [Recovering/Resolving]

NARRATIVE: CASE EVENT DATE: 20151222
